FAERS Safety Report 23530889 (Version 1)
Quarter: 2024Q1

REPORT INFORMATION
  Report Type: Spontaneous
  Country: AU (occurrence: None)
  Receive Date: 20240216
  Receipt Date: 20240216
  Transmission Date: 20240410
  Serious: Yes (Death)
  Sender: FDA-Public Use
  Company Number: 2024A038613

PATIENT
  Age: 83 Year
  Sex: Male

DRUGS (3)
  1. ANDEXANET ALFA [Suspect]
     Active Substance: ANDEXANET ALFA
     Indication: Fall
     Dosage: 880.0MG ONCE/SINGLE ADMINISTRATION
     Route: 042
     Dates: start: 20231214, end: 20231214
  2. ANDEXANET ALFA [Suspect]
     Active Substance: ANDEXANET ALFA
     Indication: Haemorrhage
     Dosage: 880.0MG ONCE/SINGLE ADMINISTRATION
     Route: 042
     Dates: start: 20231214, end: 20231214
  3. APIXABAN [Concomitant]
     Active Substance: APIXABAN
     Indication: Atrial fibrillation

REACTIONS (1)
  - Death [Fatal]

NARRATIVE: CASE EVENT DATE: 20240209
